FAERS Safety Report 6525675-2 (Version None)
Quarter: 2009Q4

REPORT INFORMATION
  Report Type: 
  Country: None (occurrence: None)
  Receive Date: 20091214
  Receipt Date: 20090202
  Transmission Date: 20100525
  Serious: Yes (Other)
  Sender: FDA-Public Use
  Company Number: 612232

PATIENT
  Age: 25 Year
  Sex: Female
  Weight: 73.5 kg

DRUGS (3)
  1. PEGASYS [Suspect]
     Indication: HEPATITIS C
     Dosage: 180 UG 1 PER WEEK SUBCUTANEOUS
     Route: 058
     Dates: start: 20080926
  2. RIBAVIRIN [Concomitant]
  3. NEUPOGEN [Concomitant]

REACTIONS (5)
  - CHEST DISCOMFORT [None]
  - DYSPNOEA [None]
  - LIP SWELLING [None]
  - PALPITATIONS [None]
  - URTICARIA [None]
